FAERS Safety Report 23127821 (Version 1)
Quarter: 2023Q4

REPORT INFORMATION
  Report Type: Spontaneous
  Country: US (occurrence: US)
  Receive Date: 20231031
  Receipt Date: 20231031
  Transmission Date: 20240110
  Serious: No
  Sender: FDA-Public Use
  Company Number: US-TARSUS PHARMACEUTICALS-TSP-US-2023-000005

PATIENT
  Age: 74 Year
  Sex: Female

DRUGS (13)
  1. XDEMVY [Suspect]
     Active Substance: LOTILANER
     Indication: Demodex blepharitis
     Dosage: UNK UNK, BID, (BOTH EYES FOR 6 WEEKS)
     Route: 047
     Dates: start: 20230904
  2. HYPOCHLOROUS ACID [Suspect]
     Active Substance: HYPOCHLOROUS ACID
     Indication: Bacterial infection
     Dosage: UNK (5 TIMES A DAY)
     Route: 065
     Dates: start: 202211
  3. TEA TREE OIL [Suspect]
     Active Substance: TEA TREE OIL
     Indication: Demodex blepharitis
     Dosage: UNK
     Route: 065
     Dates: start: 202211, end: 202309
  4. TEA TREE OIL [Suspect]
     Active Substance: TEA TREE OIL
     Dosage: UNK (50% SOLUTION)
     Route: 065
  5. OMEGA 3 [COLECALCIFEROL;DOCOSAHEXAENOIC ACID;EICOSAPENTAENOIC ACID;RET [Concomitant]
     Indication: Supplementation therapy
     Dosage: UNK
     Route: 065
  6. VILAZODONE [Concomitant]
     Active Substance: VILAZODONE
     Indication: Antidepressant therapy
     Dosage: UNK
     Route: 065
  7. EYEGEL [Concomitant]
     Indication: Product used for unknown indication
     Dosage: UNK
     Route: 065
  8. CHOLECALCIFEROL [Concomitant]
     Active Substance: CHOLECALCIFEROL
     Indication: Product used for unknown indication
     Dosage: UNK
     Route: 065
  9. DIETARY SUPPLEMENT [Concomitant]
     Active Substance: DIETARY SUPPLEMENT
     Indication: Antioxidant therapy
     Dosage: UNK
     Route: 065
  10. CALCIUM [Concomitant]
     Active Substance: CALCIUM
     Indication: Mineral supplementation
     Dosage: UNK
     Route: 065
  11. PROBIOTICS [UMBRELLA TERM] [Concomitant]
     Indication: Hypersensitivity
     Dosage: UNK
     Route: 065
  12. MAGNESIUM [Concomitant]
     Active Substance: MAGNESIUM
     Indication: Mineral supplementation
     Dosage: UNK
     Route: 065
  13. COLLAGENE [Concomitant]
     Indication: Product used for unknown indication
     Dosage: UNK
     Route: 065

REACTIONS (16)
  - Eye irritation [Recovered/Resolved]
  - Lacrimation increased [Recovered/Resolved]
  - Erythema of eyelid [Recovered/Resolved]
  - Rash [Recovered/Resolved]
  - Product expiration date issue [Unknown]
  - Product lot number issue [Unknown]
  - Eye swelling [Recovered/Resolved]
  - Ocular hyperaemia [Recovered/Resolved]
  - Eye pruritus [Recovered/Resolved]
  - Eye pain [Recovered/Resolved]
  - Foreign body sensation in eyes [Recovered/Resolved]
  - Blepharitis [Recovered/Resolved]
  - Eye discharge [Recovered/Resolved]
  - Off label use [Unknown]
  - Visual impairment [Unknown]
  - Ocular discomfort [Unknown]

NARRATIVE: CASE EVENT DATE: 20230924
